FAERS Safety Report 17940066 (Version 1)
Quarter: 2020Q2

REPORT INFORMATION
  Report Type: Spontaneous
  Country: CN (occurrence: CN)
  Receive Date: 20200625
  Receipt Date: 20200625
  Transmission Date: 20200714
  Serious: Yes (Hospitalization)
  Sender: FDA-Public Use
  Company Number: CN-SA-2020SA156378

PATIENT

DRUGS (9)
  1. LEVOFLOXACIN. [Suspect]
     Active Substance: LEVOFLOXACIN
     Dosage: 0.5 G, QD
     Route: 048
     Dates: start: 20200606, end: 20200606
  2. RIFAMPICIN [Suspect]
     Active Substance: RIFAMPIN
     Indication: TUBERCULOSIS
     Dosage: 0.3 G, QM
     Route: 048
     Dates: start: 20200520, end: 20200524
  3. ISONIAZID. [Suspect]
     Active Substance: ISONIAZID
     Indication: TUBERCULOSIS
     Dosage: 0.3 G, QM
     Route: 048
     Dates: start: 20200520, end: 20200524
  4. ETHAMBUTOL [Suspect]
     Active Substance: ETHAMBUTOL HYDROCHLORIDE
     Dosage: 0.25 G, QM
     Route: 048
     Dates: start: 20200606, end: 20200606
  5. ISONIAZID. [Suspect]
     Active Substance: ISONIAZID
     Dosage: 0.1 G, QM
     Route: 048
     Dates: start: 20200606, end: 20200606
  6. RIFAMPICIN [Suspect]
     Active Substance: RIFAMPIN
     Dosage: 0.15 G, QM
     Route: 048
     Dates: start: 20200606, end: 20200606
  7. ETHAMBUTOL [Suspect]
     Active Substance: ETHAMBUTOL HYDROCHLORIDE
     Indication: TUBERCULOSIS
     Dosage: 0.5 G, QD
     Route: 048
     Dates: start: 20200520, end: 20200524
  8. LEVOFLOXACIN. [Suspect]
     Active Substance: LEVOFLOXACIN
     Indication: TUBERCULOSIS
     Dosage: 0.5 G, QD
     Route: 048
     Dates: start: 20200520, end: 20200524
  9. SILYBIN [Concomitant]
     Indication: PROPHYLAXIS
     Dosage: 105 MG, QD
     Route: 048
     Dates: start: 20200519, end: 20200524

REACTIONS (6)
  - Pruritus [Recovering/Resolving]
  - Erythema [Unknown]
  - Rash [Recovering/Resolving]
  - Papule [Unknown]
  - Pain [Unknown]
  - Off label use [Unknown]

NARRATIVE: CASE EVENT DATE: 20200521
